FAERS Safety Report 12609985 (Version 1)
Quarter: 2016Q3

REPORT INFORMATION
  Report Type: Spontaneous
  Country: PT (occurrence: PT)
  Receive Date: 20160801
  Receipt Date: 20160801
  Transmission Date: 20161109
  Serious: Yes (Hospitalization, Other)
  Sender: FDA-Public Use
  Company Number: PT-WATSON-2016-16696

PATIENT
  Age: 53 Year
  Sex: Female

DRUGS (7)
  1. BUPROPION HYDROCHLORIDE (ACTAVIS LABORATORIES FL) [Interacting]
     Active Substance: BUPROPION HYDROCHLORIDE
     Indication: MAJOR DEPRESSION
     Dosage: 300 MG, DAILY
     Route: 065
  2. THIOPENTAL [Concomitant]
     Active Substance: THIOPENTAL
     Indication: PREMEDICATION
     Dosage: 275 MG, TOTAL
     Route: 065
  3. ATROPINE. [Concomitant]
     Active Substance: ATROPINE
     Indication: PREMEDICATION
     Dosage: 0.5 MG, TOTAL
     Route: 065
  4. SUCCINYLCHOLINE [Concomitant]
     Active Substance: SUCCINYLCHOLINE
     Indication: PREMEDICATION
     Dosage: 55 MG, TOTAL
     Route: 065
  5. SERTRALINE [Interacting]
     Active Substance: SERTRALINE HYDROCHLORIDE
     Indication: MAJOR DEPRESSION
     Dosage: 200 MG, DAILY
     Route: 065
  6. RISPERIDONE (UNKNOWN) [Suspect]
     Active Substance: RISPERIDONE
     Indication: MAJOR DEPRESSION
     Dosage: 2 MG, DAILY
     Route: 065
  7. RISPERIDONE (UNKNOWN) [Interacting]
     Active Substance: RISPERIDONE
     Dosage: 4 MG, DAILY
     Route: 065

REACTIONS (2)
  - Generalised tonic-clonic seizure [Recovered/Resolved]
  - Drug interaction [Recovered/Resolved]
